FAERS Safety Report 26204463 (Version 2)
Quarter: 2025Q4

REPORT INFORMATION
  Report Type: Spontaneous
  Country: JP (occurrence: JP)
  Receive Date: 20251226
  Receipt Date: 20251231
  Transmission Date: 20260118
  Serious: Yes (Hospitalization)
  Sender: NEUROCRINE BIOSCIENCES
  Company Number: JP-TANABE_PHARMA-MTPC2025-0022273

PATIENT
  Age: 83 Year
  Sex: Female

DRUGS (5)
  1. VALBENAZINE [Suspect]
     Active Substance: VALBENAZINE
     Indication: Product used for unknown indication
     Dosage: 40 MILLIGRAM, QD
  2. LEVODOPA [Concomitant]
     Active Substance: LEVODOPA
     Dosage: UNK
  3. AMLODIPINE [Concomitant]
     Active Substance: AMLODIPINE BESYLATE
     Dosage: UNK
  4. LANSOPRAZOLE [Concomitant]
     Active Substance: LANSOPRAZOLE
  5. MIYA-BM [Concomitant]
     Active Substance: CLOSTRIDIUM BUTYRICUM SPORES STRAIN M-55

REACTIONS (11)
  - Arrhythmia [Unknown]
  - Urinary tract infection [Unknown]
  - Oxygen saturation decreased [Unknown]
  - Blood pressure decreased [Unknown]
  - Body temperature decreased [Unknown]
  - Bradycardia [Unknown]
  - QRS axis abnormal [Unknown]
  - Depressed level of consciousness [Unknown]
  - Dehydration [Unknown]
  - Off label use [Unknown]
  - Off label use [Unknown]
